FAERS Safety Report 22315593 (Version 1)
Quarter: 2023Q2

REPORT INFORMATION
  Report Type: Spontaneous
  Country: US (occurrence: US)
  Receive Date: 20230512
  Receipt Date: 20230512
  Transmission Date: 20230722
  Serious: Yes (Other)
  Sender: FDA-Public Use
  Company Number: US-PFIZER INC-202300185003

PATIENT
  Age: 58 Year
  Sex: Female
  Weight: 49.44 kg

DRUGS (5)
  1. IBRANCE [Suspect]
     Active Substance: PALBOCICLIB
     Indication: Neoplasm malignant
     Dosage: 100 MG, CYCLIC (7 IN A BOX MONDAY-SUNDAY TAKES EVERY NIGHT FOR 2 WEEKS AND THEN OFF A WEEK)
     Dates: start: 2022
  2. VITAMIN C [Concomitant]
     Active Substance: ASCORBIC ACID
     Dosage: UNK
  3. CHOLECALCIFEROL [Concomitant]
     Active Substance: CHOLECALCIFEROL
     Dosage: UNK
  4. VITAMIN E [Concomitant]
     Active Substance: .ALPHA.-TOCOPHEROL
     Dosage: UNK
  5. VITAMIN B12 [Concomitant]
     Active Substance: CYANOCOBALAMIN
     Dosage: UNK

REACTIONS (8)
  - Pneumonia [Unknown]
  - Tremor [Unknown]
  - Feeling cold [Unknown]
  - Weight decreased [Unknown]
  - COVID-19 [Unknown]
  - Peripheral coldness [Recovered/Resolved]
  - Speech disorder [Unknown]
  - Product blister packaging issue [Unknown]

NARRATIVE: CASE EVENT DATE: 20220101
